FAERS Safety Report 10363606 (Version 3)
Quarter: 2015Q1

REPORT INFORMATION
  Report Type: Spontaneous
  Country: US (occurrence: CA)
  Receive Date: 20140805
  Receipt Date: 20150218
  Transmission Date: 20150720
  Serious: Yes (Death)
  Sender: FDA-Public Use
  Company Number: US-MYLANLABS-2014S1017675

PATIENT
  Age: 51 Year
  Sex: Female

DRUGS (1)
  1. EPINEPHRINE. [Suspect]
     Active Substance: EPINEPHRINE
     Indication: ARTHROPOD STING
     Dosage: UNK
     Dates: start: 20140720, end: 20140720

REACTIONS (2)
  - Poisoning [Fatal]
  - Drug ineffective [Fatal]

NARRATIVE: CASE EVENT DATE: 20140720
